FAERS Safety Report 15787852 (Version 2)
Quarter: 2019Q1

REPORT INFORMATION
  Report Type: Report from Study
  Country: None (occurrence: US)
  Receive Date: 20190104
  Receipt Date: 20190201
  Transmission Date: 20190417
  Serious: Yes (Other)
  Sender: FDA-Public Use
  Company Number: US-ABBVIE-18K-163-2529264-00

PATIENT
  Age: 73 Year
  Sex: Female

DRUGS (2)
  1. HUMIRA [Suspect]
     Active Substance: ADALIMUMAB
     Indication: PSORIASIS
     Dosage: DAY 1
     Route: 058
     Dates: start: 20181019, end: 20181019
  2. HUMIRA [Suspect]
     Active Substance: ADALIMUMAB
     Route: 058
     Dates: start: 2018

REACTIONS (14)
  - Cataract operation complication [Unknown]
  - Chronic obstructive pulmonary disease [Unknown]
  - Pruritus [Recovering/Resolving]
  - Balance disorder [Unknown]
  - Drug ineffective [Not Recovered/Not Resolved]
  - Chills [Unknown]
  - Hyperhidrosis [Unknown]
  - Malaise [Unknown]
  - Pain in extremity [Unknown]
  - Cataract [Unknown]
  - Eye pruritus [Unknown]
  - Dry skin [Unknown]
  - Fatigue [Unknown]
  - Hypersensitivity [Unknown]

NARRATIVE: CASE EVENT DATE: 2018
